FAERS Safety Report 4338324-9 (Version None)
Quarter: 2004Q2

REPORT INFORMATION
  Report Type: 
  Country: None (occurrence: None)
  Receive Date: 20040409
  Receipt Date: 20040326
  Transmission Date: 20050107
  Serious: Yes (Hospitalization)
  Sender: FDA-Public Use
  Company Number: 2004PK00582

PATIENT
  Age: 19 Year
  Sex: Female

DRUGS (2)
  1. SEROQUEL [Suspect]
     Indication: SCHIZOPHRENIA, RESIDUAL TYPE
     Dosage: 600 MG DAILY PO
     Route: 048
     Dates: start: 20020301
  2. BROMOCRIPTIN [Concomitant]

REACTIONS (2)
  - BRIEF PSYCHOTIC DISORDER, WITH POSTPARTUM ONSET [None]
  - CONDITION AGGRAVATED [None]
